FAERS Safety Report 14358338 (Version 2)
Quarter: 2018Q2

REPORT INFORMATION
  Report Type: Spontaneous
  Country: US (occurrence: US)
  Receive Date: 20180105
  Receipt Date: 20180625
  Transmission Date: 20180711
  Serious: No
  Sender: FDA-Public Use
  Company Number: US-SA-2017SA204703

PATIENT
  Age: 53 Year
  Sex: Female

DRUGS (3)
  1. DUPIXENT [Suspect]
     Active Substance: DUPILUMAB
     Dosage: 2 DF,QOW
     Route: 058
     Dates: start: 20171026, end: 20171026
  2. DUPIXENT [Suspect]
     Active Substance: DUPILUMAB
     Indication: DERMATITIS ATOPIC
     Dosage: 600 MG,1X
     Route: 058
     Dates: start: 20170929, end: 20170929
  3. DUPIXENT [Suspect]
     Active Substance: DUPILUMAB
     Dosage: 300 MG, QOW
     Route: 058
     Dates: start: 201710

REACTIONS (8)
  - Eye pruritus [Recovering/Resolving]
  - Incorrect dose administered [Unknown]
  - Sleep disorder [Not Recovered/Not Resolved]
  - Dermatitis [Recovering/Resolving]
  - Pain [Not Recovered/Not Resolved]
  - Conjunctivitis [Recovering/Resolving]
  - Drug prescribing error [Unknown]
  - Rash [Not Recovered/Not Resolved]

NARRATIVE: CASE EVENT DATE: 201709
